FAERS Safety Report 19867942 (Version 2)
Quarter: 2022Q1

REPORT INFORMATION
  Report Type: Report from Study
  Country: US (occurrence: US)
  Receive Date: 20210922
  Receipt Date: 20220120
  Transmission Date: 20220423
  Serious: No
  Sender: FDA-Public Use
  Company Number: US-NOVARTISTESTPH-NVSC2021US215165

PATIENT
  Sex: Female

DRUGS (2)
  1. ILARIS [Suspect]
     Active Substance: CANAKINUMAB
     Indication: Still^s disease
     Dosage: 150 MG, Q4W
     Route: 058
     Dates: start: 20131107
  2. ILARIS [Suspect]
     Active Substance: CANAKINUMAB
     Dosage: 150 MG,Q4W
     Route: 058
     Dates: start: 20200911

REACTIONS (2)
  - Inappropriate schedule of product administration [Unknown]
  - COVID-19 [Unknown]
